FAERS Safety Report 7488949-7 (Version None)
Quarter: 2011Q2

REPORT INFORMATION
  Report Type: 
  Country: None (occurrence: None)
  Receive Date: 20110518
  Receipt Date: 20110505
  Transmission Date: 20111010
  Serious: Yes (Hospitalization)
  Sender: FDA-Public Use
  Company Number: US-UCBSA-032626

PATIENT
  Sex: Female

DRUGS (12)
  1. XYREM [Suspect]
     Dosage: 3.75 GM 3 TO 4 TIMES PER NIGHT
     Route: 048
  2. DILAUDID [Suspect]
  3. XYREM [Suspect]
     Route: 048
  4. XYREM [Suspect]
     Dosage: UNKNOWN DOSE
     Route: 048
  5. FLEXERIL [Suspect]
  6. XYREM [Suspect]
     Route: 048
     Dates: start: 20090109
  7. ROPINIROLE [Concomitant]
  8. MIRTAZAPINE [Concomitant]
  9. OXYCONTIN [Suspect]
  10. ESCITALOPRAM OXALATE [Concomitant]
  11. XYREM [Suspect]
     Indication: NARCOLEPSY
     Dosage: TWICE NIGHTLY
     Route: 048
     Dates: start: 20070223
  12. LORTAB [Suspect]

REACTIONS (2)
  - MULTIPLE DRUG OVERDOSE INTENTIONAL [None]
  - SUICIDE ATTEMPT [None]
